FAERS Safety Report 16039576 (Version 1)
Quarter: 2019Q1

REPORT INFORMATION
  Report Type: Report from Study
  Country: None (occurrence: BR)
  Receive Date: 20190306
  Receipt Date: 20190306
  Transmission Date: 20190418
  Serious: Yes (Other)
  Sender: FDA-Public Use
  Company Number: BR-ABBVIE-19K-020-2686664-00

PATIENT
  Age: 41 Year
  Sex: Male
  Weight: 85 kg

DRUGS (4)
  1. HUMIRA [Suspect]
     Active Substance: ADALIMUMAB
     Indication: ANKYLOSING SPONDYLITIS
     Route: 058
     Dates: start: 20160311
  2. HYDROXYCHLOROQUINE [Concomitant]
     Active Substance: HYDROXYCHLOROQUINE
     Indication: PAIN
  3. OMENAX [Concomitant]
     Indication: PAIN
  4. PROFENID [Concomitant]
     Active Substance: KETOPROFEN
     Indication: PAIN

REACTIONS (11)
  - Peritoneal tuberculosis [Not Recovered/Not Resolved]
  - Inguinal hernia [Recovered/Resolved]
  - Weight fluctuation [Unknown]
  - Peritonitis [Unknown]
  - Skin injury [Unknown]
  - Immunodeficiency [Unknown]
  - Peritoneal mesothelial hyperplasia [Unknown]
  - Gastrointestinal necrosis [Unknown]
  - Mass [Unknown]
  - Procedural pain [Recovered/Resolved]
  - Granuloma [Unknown]

NARRATIVE: CASE EVENT DATE: 201809
